FAERS Safety Report 23638075 (Version 2)
Quarter: 2024Q2

REPORT INFORMATION
  Report Type: Report from Study
  Country: US (occurrence: None)
  Receive Date: 20240315
  Receipt Date: 20240408
  Transmission Date: 20240716
  Serious: Yes (Hospitalization)
  Sender: FDA-Public Use
  Company Number: 2024A060017

PATIENT
  Sex: Female
  Weight: 68 kg

DRUGS (8)
  1. TAGRISSO [Suspect]
     Active Substance: OSIMERTINIB
     Indication: Lung neoplasm malignant
     Route: 048
  2. ELIQUIS [Concomitant]
     Active Substance: APIXABAN
  3. ATORVASTATIN CALCIUM [Concomitant]
     Active Substance: ATORVASTATIN CALCIUM
  4. LOSARTAN POTASSIUM [Concomitant]
     Active Substance: LOSARTAN POTASSIUM
  5. METOPROLOL SUCCINATE [Concomitant]
     Active Substance: METOPROLOL SUCCINATE
  6. CRANBERRY [Concomitant]
     Active Substance: CRANBERRY
  7. LANTUS [Concomitant]
     Active Substance: INSULIN GLARGINE
  8. XGEVA [Concomitant]
     Active Substance: DENOSUMAB

REACTIONS (2)
  - Choking sensation [Recovering/Resolving]
  - Pleural effusion [Recovering/Resolving]
